FAERS Safety Report 12493149 (Version 4)
Quarter: 2017Q3

REPORT INFORMATION
  Report Type: Report from Study
  Country: US (occurrence: US)
  Receive Date: 20160623
  Receipt Date: 20170901
  Transmission Date: 20171127
  Serious: Yes (Hospitalization, Other)
  Sender: FDA-Public Use
  Company Number: US-VERTEX PHARMACEUTICALS-2016-003618

PATIENT
  Age: 18 Year
  Sex: Female

DRUGS (15)
  1. LEVOFLOXACIN. [Concomitant]
     Active Substance: LEVOFLOXACIN
  2. PREDNISONE. [Concomitant]
     Active Substance: PREDNISONE
  3. AZITHROMYCIN ANHYDROUS. [Concomitant]
     Active Substance: AZITHROMYCIN ANHYDROUS
  4. VORICONAZOLE. [Concomitant]
     Active Substance: VORICONAZOLE
  5. BETHKIS [Suspect]
     Active Substance: TOBRAMYCIN
     Indication: PRODUCT USED FOR UNKNOWN INDICATION
     Dosage: 300 MG, BID
     Route: 055
     Dates: start: 20160211
  6. HYPERSAL [Concomitant]
  7. SYMBICORT [Concomitant]
     Active Substance: BUDESONIDE\FORMOTEROL FUMARATE DIHYDRATE
  8. ORKAMBI [Suspect]
     Active Substance: IVACAFTOR\LUMACAFTOR
     Indication: CYSTIC FIBROSIS
     Dosage: REDUCED DOSE
     Route: 048
     Dates: start: 20160427, end: 201605
  9. ORKAMBI [Suspect]
     Active Substance: IVACAFTOR\LUMACAFTOR
     Dosage: 2 DF (200/125MG EACH) BID (FULL DOSE)
     Route: 048
     Dates: start: 201605, end: 20170809
  10. PULMOZYME [Concomitant]
     Active Substance: DORNASE ALFA
  11. AMOXICILLIN. [Concomitant]
     Active Substance: AMOXICILLIN
  12. ALBUTEROL. [Concomitant]
     Active Substance: ALBUTEROL
  13. LEVAQUIN [Concomitant]
     Active Substance: LEVOFLOXACIN
  14. ZITHROMAX [Concomitant]
     Active Substance: AZITHROMYCIN DIHYDRATE
  15. PERCOCET [Concomitant]
     Active Substance: ACETAMINOPHEN\OXYCODONE HYDROCHLORIDE

REACTIONS (8)
  - Dyspnoea [Not Recovered/Not Resolved]
  - Pollakiuria [Unknown]
  - Dehydration [Unknown]
  - Pulmonary congestion [Unknown]
  - Chest discomfort [Not Recovered/Not Resolved]
  - Pneumothorax [Unknown]
  - Productive cough [Unknown]
  - Fungal infection [Unknown]

NARRATIVE: CASE EVENT DATE: 201605
